FAERS Safety Report 10642961 (Version 1)
Quarter: 2014Q4

REPORT INFORMATION
  Report Type: Spontaneous
  Country: US (occurrence: None)
  Receive Date: 20141121
  Receipt Date: 20141121
  Transmission Date: 20150529
  Serious: No
  Sender: FDA-Public Use
  Company Number: 163-10004-14070228

PATIENT
  Age: 42 Year
  Sex: Male
  Weight: 76.2 kg

DRUGS (5)
  1. METHOTREXATE(METHOTREXATE) [Concomitant]
  2. METHOTREXATE(METHOTREXATE) [Concomitant]
  3. VIMOVO(VIMOVO) [Concomitant]
  4. OTEZLA [Suspect]
     Active Substance: APREMILAST
     Indication: PSORIATIC ARTHROPATHY
     Route: 048
     Dates: start: 201406
  5. VIMOVO(VIMOVO) [Concomitant]

REACTIONS (2)
  - Somnolence [None]
  - Abdominal discomfort [None]

NARRATIVE: CASE EVENT DATE: 201406
